FAERS Safety Report 7672045-X (Version None)
Quarter: 2011Q3

REPORT INFORMATION
  Report Type: 
  Country: None (occurrence: None)
  Receive Date: 20110809
  Receipt Date: 20110803
  Transmission Date: 20111222
  Serious: Yes (Hospitalization, Other)
  Sender: FDA-Public Use
  Company Number: PT-ABBOTT-11P-130-0844252-00

PATIENT
  Age: 46 Year
  Sex: Male

DRUGS (6)
  1. HUMIRA [Suspect]
  2. ENBREL [Suspect]
     Indication: LEUKOCYTE ANTIGEN B-27 POSITIVE
     Dates: start: 20060101, end: 20101001
  3. METHOTREXATE [Concomitant]
     Indication: SPONDYLOARTHROPATHY
  4. HUMIRA [Suspect]
     Indication: SERONEGATIVE ARTHRITIS
  5. ENBREL [Suspect]
  6. UNSPECIFIED ANTI-INFLAMMATRY DRUG [Concomitant]
     Indication: PRODUCT USED FOR UNKNOWN INDICATION

REACTIONS (4)
  - CENTRAL NERVOUS SYSTEM LESION [None]
  - DRUG INEFFECTIVE [None]
  - PROGRESSIVE MULTIFOCAL LEUKOENCEPHALOPATHY [None]
  - MONOPARESIS [None]
